FAERS Safety Report 13130234 (Version 2)
Quarter: 2017Q1

REPORT INFORMATION
  Report Type: Spontaneous
  Country: JP (occurrence: JP)
  Receive Date: 20170119
  Receipt Date: 20170217
  Transmission Date: 20170428
  Serious: Yes (Other)
  Sender: FDA-Public Use
  Company Number: JP-GLAXOSMITHKLINE-JP2017JPN004416

PATIENT
  Age: 82 Year
  Sex: Male

DRUGS (2)
  1. VOLTAREN EX TAPE [Suspect]
     Active Substance: DICLOFENAC SODIUM
     Indication: ANALGESIC THERAPY
     Dosage: 7 DF, QD
     Route: 050
     Dates: start: 20170110, end: 20170110
  2. VOLTAREN EX TAPE [Suspect]
     Active Substance: DICLOFENAC SODIUM
     Indication: ANTIINFLAMMATORY THERAPY

REACTIONS (3)
  - Overdose [Unknown]
  - Angina pectoris [Not Recovered/Not Resolved]
  - Therapeutic response decreased [Unknown]

NARRATIVE: CASE EVENT DATE: 20170110
